FAERS Safety Report 6539547-0 (Version None)
Quarter: 2010Q1

REPORT INFORMATION
  Report Type: 
  Country: None (occurrence: None)
  Receive Date: 20100115
  Receipt Date: 20100108
  Transmission Date: 20100710
  Serious: Yes (Hospitalization)
  Sender: FDA-Public Use
  Company Number: B0624326A

PATIENT
  Age: 62 Year
  Sex: Female

DRUGS (6)
  1. AUGMENTIN '125' [Suspect]
     Route: 042
     Dates: start: 20091028, end: 20091105
  2. OFLOCET [Suspect]
     Route: 042
     Dates: start: 20091028, end: 20091105
  3. CLAFORAN [Suspect]
     Dosage: 2G THREE TIMES PER DAY
     Route: 042
     Dates: start: 20091106, end: 20091112
  4. TARGOCID [Suspect]
     Dosage: 800MG TWICE PER DAY
     Route: 042
     Dates: start: 20091106, end: 20091128
  5. BACTRIM [Suspect]
     Route: 042
     Dates: start: 20091112, end: 20091121
  6. RIFAMPICIN [Suspect]
     Dosage: 600MG TWICE PER DAY
     Route: 042
     Dates: start: 20091112, end: 20091128

REACTIONS (5)
  - EOSINOPHILIA [None]
  - INFLAMMATION [None]
  - PRURITUS [None]
  - RASH MACULO-PAPULAR [None]
  - TOXIC SKIN ERUPTION [None]
